FAERS Safety Report 11074229 (Version 2)
Quarter: 2015Q2

REPORT INFORMATION
  Report Type: Spontaneous
  Country: IT (occurrence: IT)
  Receive Date: 20150429
  Receipt Date: 20150511
  Transmission Date: 20150821
  Serious: Yes (Other)
  Sender: FDA-Public Use
  Company Number: IT-B.I. PHARMACEUTICALS,INC./RIDGEFIELD-2015-BI-22019IT

PATIENT
  Age: 35 Year
  Sex: Male

DRUGS (5)
  1. DIBASE [Concomitant]
     Active Substance: CHOLECALCIFEROL
     Indication: PRODUCT USED FOR UNKNOWN INDICATION
     Dosage: STRENGTH: 100000
     Route: 065
     Dates: start: 20130109
  2. TRUVADA [Suspect]
     Active Substance: EMTRICITABINE\TENOFOVIR DISOPROXIL FUMARATE
     Indication: ACUTE HIV INFECTION
     Route: 048
     Dates: start: 20120622, end: 20150416
  3. PREZISTA [Suspect]
     Active Substance: DARUNAVIR ETHANOLATE
     Indication: ACUTE HIV INFECTION
     Route: 048
     Dates: start: 20120705, end: 20130409
  4. VIRAMUNE [Suspect]
     Active Substance: NEVIRAPINE
     Indication: ACUTE HIV INFECTION
     Route: 048
     Dates: start: 20130410, end: 20150416
  5. NORVIR [Suspect]
     Active Substance: RITONAVIR
     Indication: ACUTE HIV INFECTION
     Route: 048
     Dates: start: 20120705, end: 20130409

REACTIONS (1)
  - Osteoporosis [Not Recovered/Not Resolved]

NARRATIVE: CASE EVENT DATE: 20140311
